FAERS Safety Report 14908733 (Version 3)
Quarter: 2018Q2

REPORT INFORMATION
  Report Type: Report from Study
  Country: US (occurrence: US)
  Receive Date: 20180517
  Receipt Date: 20180627
  Transmission Date: 20180711
  Serious: Yes (Death, Hospitalization)
  Sender: FDA-Public Use
  Company Number: US-JNJFOC-20180227293

PATIENT
  Age: 64 Year
  Sex: Male

DRUGS (17)
  1. OXYCONTIN [Concomitant]
     Active Substance: OXYCODONE HYDROCHLORIDE
     Indication: CANCER PAIN
     Dosage: EVERY 8 HOURS
     Route: 048
  2. METFORMIN [Concomitant]
     Active Substance: METFORMIN HYDROCHLORIDE
     Route: 048
  3. OXYCONTIN [Concomitant]
     Active Substance: OXYCODONE HYDROCHLORIDE
     Indication: CANCER PAIN
     Dosage: EVERY 4-6 HOURS
     Route: 048
  4. VITAMIN D3 [Concomitant]
     Active Substance: CHOLECALCIFEROL
     Dosage: 1000 UNITS
     Route: 048
  5. ACYCLOVIR. [Concomitant]
     Active Substance: ACYCLOVIR
     Route: 048
  6. ERYTHROMYCIN. [Concomitant]
     Active Substance: ERYTHROMYCIN
     Dosage: (0.5%) EYE OINTMENT, 1/2 INCH AT BED TIME
     Route: 047
  7. PROAIR HFA [Concomitant]
     Active Substance: ALBUTEROL SULFATE
     Dosage: 90 MCG/ACTUATION, FOUR TIMES A DAY AS NEEDED
  8. CLOTRIMAZOLE. [Concomitant]
     Active Substance: CLOTRIMAZOLE
     Dosage: TABLET
     Route: 048
  9. SENNA [Concomitant]
     Active Substance: SENNA LEAF\SENNOSIDES\SENNOSIDES A AND B
     Dosage: PRN (2-3 TABLETS)
     Route: 048
  10. IMBRUVICA [Suspect]
     Active Substance: IBRUTINIB
     Indication: WALDENSTROM^S MACROGLOBULINAEMIA
     Route: 048
     Dates: start: 20150618, end: 20180214
  11. OMEPRAZOLE. [Concomitant]
     Active Substance: OMEPRAZOLE
     Route: 048
  12. CETIRIZINE [Concomitant]
     Active Substance: CETIRIZINE HYDROCHLORIDE
     Indication: HYPERSENSITIVITY
     Dosage: PRN
     Route: 048
  13. FOLIC ACID. [Concomitant]
     Active Substance: FOLIC ACID
     Route: 048
  14. ECONAZOLE [Concomitant]
     Active Substance: ECONAZOLE
     Route: 061
  15. NADOLOL. [Concomitant]
     Active Substance: NADOLOL
     Route: 048
  16. NORTRIPTYLINE [Concomitant]
     Active Substance: NORTRIPTYLINE
     Route: 048
  17. LYRICA [Concomitant]
     Active Substance: PREGABALIN
     Dosage: TID (1 OF 100 MG CAPSULE IN MORNING, 1 CAPSULE IN AFTERNOON AND 2 CAPSULES AT NIGHT)
     Route: 048

REACTIONS (9)
  - Multiple organ dysfunction syndrome [Fatal]
  - Pneumonia [Fatal]
  - Onychomycosis [Unknown]
  - Subcutaneous haematoma [Unknown]
  - Drug ineffective [Unknown]
  - Constipation [Unknown]
  - Disease progression [Fatal]
  - Acute respiratory distress syndrome [Fatal]
  - Arrhythmia [Fatal]

NARRATIVE: CASE EVENT DATE: 2018
